FAERS Safety Report 21190661 (Version 2)
Quarter: 2022Q3

REPORT INFORMATION
  Report Type: Spontaneous
  Country: PL (occurrence: PL)
  Receive Date: 20220809
  Receipt Date: 20220909
  Transmission Date: 20221027
  Serious: Yes (Other)
  Sender: FDA-Public Use
  Company Number: None

PATIENT
  Age: 64 Year
  Sex: Male

DRUGS (8)
  1. OMEPRAZOLE [Interacting]
     Active Substance: OMEPRAZOLE
     Indication: Prophylaxis against gastrointestinal ulcer
     Dosage: 40 MG, PER DAY
  2. LORNOXICAM [Suspect]
     Active Substance: LORNOXICAM
     Indication: Osteoarthritis
     Dosage: 8 MG, PER DAY
  3. WARFARIN [Interacting]
     Active Substance: WARFARIN
     Indication: Atrial fibrillation
     Dosage: UNK
  4. WARFARIN [Interacting]
     Active Substance: WARFARIN
  5. SODIUM CHONDROITIN SULFATE [Suspect]
     Active Substance: SODIUM CHONDROITIN SULFATE
     Indication: Osteoarthritis
     Dosage: 1500 MG, PER DAY
  6. TAMSULOSIN [Interacting]
     Active Substance: TAMSULOSIN
     Dosage: 0.4 MG, PER DAY
  7. PROPAFENONE HYDROCHLORIDE [Suspect]
     Active Substance: PROPAFENONE HYDROCHLORIDE
     Indication: Atrial fibrillation
     Dosage: 300 MG, PER DAY
  8. METOPROLOL [Suspect]
     Active Substance: METOPROLOL
     Indication: Atrial fibrillation
     Dosage: 100 MG, PER DAY

REACTIONS (4)
  - Atrial fibrillation [Unknown]
  - Drug interaction [Unknown]
  - Upper gastrointestinal haemorrhage [Unknown]
  - Haematuria [Unknown]
